FAERS Safety Report 21741017 (Version 14)
Quarter: 2025Q1

REPORT INFORMATION
  Report Type: Spontaneous
  Country: US (occurrence: None)
  Receive Date: 20221216
  Receipt Date: 20250311
  Transmission Date: 20250408
  Serious: No
  Sender: INCYTE
  Company Number: US-INCYTE CORPORATION-2022IN011994

PATIENT
  Age: 83 Year
  Weight: 78 kg

DRUGS (15)
  1. JAKAFI [Suspect]
     Active Substance: RUXOLITINIB
     Indication: Polycythaemia vera
     Dosage: 5 MILLIGRAM, BID
  2. JAKAFI [Suspect]
     Active Substance: RUXOLITINIB
  3. JAKAFI [Suspect]
     Active Substance: RUXOLITINIB
     Dosage: 10MG IN THE MORNING, 5MG IN THE EVENING
  4. JAKAFI [Suspect]
     Active Substance: RUXOLITINIB
  5. JAKAFI [Suspect]
     Active Substance: RUXOLITINIB
     Dosage: 10 MILLIGRAM, QD
  6. JAKAFI [Suspect]
     Active Substance: RUXOLITINIB
     Route: 065
  7. JAKAFI [Suspect]
     Active Substance: RUXOLITINIB
  8. JAKAFI [Suspect]
     Active Substance: RUXOLITINIB
  9. JAKAFI [Suspect]
     Active Substance: RUXOLITINIB
     Dosage: 5 MILLIGRAM, BID
  10. JAKAFI [Suspect]
     Active Substance: RUXOLITINIB
     Dosage: 5 MILLIGRAM (CUTTING 10MG TABLETS IN HALF)
  11. JAKAFI [Suspect]
     Active Substance: RUXOLITINIB
     Dosage: 10 MILLIGRAM, BID
  12. JAKAFI [Suspect]
     Active Substance: RUXOLITINIB
     Dosage: 5 MILLIGRAM, BID
  13. JAKAFI [Suspect]
     Active Substance: RUXOLITINIB
     Dosage: 5 MILLIGRAM, BID
  14. JAKAFI [Suspect]
     Active Substance: RUXOLITINIB
     Dosage: 5 MILLIGRAM, QAM
  15. JAKAFI [Suspect]
     Active Substance: RUXOLITINIB
     Dosage: 5 MILLIGRAM, BID

REACTIONS (15)
  - Platelet count increased [Recovering/Resolving]
  - Myalgia [Unknown]
  - Illness [Unknown]
  - Oropharyngeal pain [Unknown]
  - Depressed mood [Unknown]
  - Abdominal pain [Not Recovered/Not Resolved]
  - Abdominal pain upper [Recovering/Resolving]
  - Product availability issue [Unknown]
  - Product dose omission in error [Unknown]
  - Product dose omission issue [Unknown]
  - Wrong technique in product usage process [Unknown]
  - Urinary tract infection [Recovered/Resolved]
  - Flatulence [Unknown]
  - Diarrhoea [Recovering/Resolving]
  - Nausea [Unknown]
